FAERS Safety Report 8756286 (Version 2)
Quarter: 2012Q4

REPORT INFORMATION
  Report Type: 
  Country: CA (occurrence: CA)
  Receive Date: 20120828
  Receipt Date: 20121030
  Transmission Date: 20130627
  Serious: Yes (Life-Threatening, Disabling, Other)
  Sender: FDA-Public Use
  Company Number: PHHY2012CA073300

PATIENT
  Sex: Male

DRUGS (5)
  1. CLOZARIL (CLOZAPINE) [Suspect]
     Indication: PSYCHOTIC DISORDER
     Dosage: UNK UKN, UNK
     Route: 048
     Dates: start: 20000928
  2. RABEPRAZOLE [Concomitant]
     Dosage: 20 mg, UNK
     Route: 048
     Dates: start: 200805
  3. DOCUSATE CALCIUM [Concomitant]
     Dosage: 240 mg, BID
     Route: 048
     Dates: start: 200904
  4. VENLAFAXINE [Concomitant]
     Dosage: 150 mg, BID
     Route: 048
     Dates: start: 200905
  5. ANTIPSYCHOTICS [Concomitant]
     Dosage: UNK UKN, UNK

REACTIONS (3)
  - Intestinal obstruction [Recovered/Resolved with Sequelae]
  - Adhesion [Unknown]
  - Vomiting [Not Recovered/Not Resolved]
